FAERS Safety Report 6731825-5 (Version None)
Quarter: 2010Q2

REPORT INFORMATION
  Report Type: 
  Country: None (occurrence: None)
  Receive Date: 20100519
  Receipt Date: 20100507
  Transmission Date: 20101027
  Serious: Yes (Other)
  Sender: FDA-Public Use
  Company Number: PHHY2010JP26933

PATIENT
  Age: 69 Year
  Sex: Female

DRUGS (3)
  1. PAMIDRONATE DISODIUM [Suspect]
     Dosage: UNK
     Route: 041
  2. LETROZOLE [Suspect]
     Dosage: UNK
  3. ZOLEDRONIC ACID [Suspect]
     Dosage: UNK

REACTIONS (4)
  - EFFUSION [None]
  - HEADACHE [None]
  - INCISIONAL DRAINAGE [None]
  - OTITIS MEDIA [None]
